FAERS Safety Report 14438449 (Version 2)
Quarter: 2018Q1

REPORT INFORMATION
  Report Type: Spontaneous
  Country: US (occurrence: US)
  Receive Date: 20180125
  Receipt Date: 20180221
  Transmission Date: 20180509
  Serious: Yes (Hospitalization)
  Sender: FDA-Public Use
  Company Number: US-JNJFOC-20180124645

PATIENT
  Age: 46 Year
  Sex: Female
  Weight: 60.78 kg

DRUGS (8)
  1. BACLOFEN. [Concomitant]
     Active Substance: BACLOFEN
     Indication: MUSCLE SPASMS
     Dosage: MORE TABLETS IF REQUIRED
     Route: 048
  2. FENTANYL. [Suspect]
     Active Substance: FENTANYL
     Indication: MUSCLE SPASMS
     Route: 062
  3. BACLOFEN. [Concomitant]
     Active Substance: BACLOFEN
     Indication: PAIN
     Dosage: MORE TABLETS IF REQUIRED
     Route: 048
  4. BACLOFEN. [Concomitant]
     Active Substance: BACLOFEN
     Indication: STIFF PERSON SYNDROME
     Dosage: MORE TABLETS IF REQUIRED
     Route: 048
  5. LEVOTHYROXIN [Concomitant]
     Active Substance: LEVOTHYROXINE
     Indication: THYROID DISORDER
     Route: 065
  6. FENTANYL. [Suspect]
     Active Substance: FENTANYL
     Indication: BACK PAIN
     Route: 062
  7. FENTANYL. [Suspect]
     Active Substance: FENTANYL
     Indication: STIFF PERSON SYNDROME
     Route: 062
  8. DIAZEPAM. [Concomitant]
     Active Substance: DIAZEPAM
     Indication: STIFF PERSON SYNDROME
     Route: 065

REACTIONS (4)
  - Intracranial aneurysm [Unknown]
  - Pain in extremity [Not Recovered/Not Resolved]
  - Muscle spasms [Not Recovered/Not Resolved]
  - Incorrect drug administration duration [Unknown]

NARRATIVE: CASE EVENT DATE: 201303
